FAERS Safety Report 5485531-8 (Version None)
Quarter: 2007Q4

REPORT INFORMATION
  Report Type: 
  Country: None (occurrence: None)
  Receive Date: 20071011
  Receipt Date: 20071011
  Transmission Date: 20080405
  Serious: Yes (Hospitalization)
  Sender: FDA-Public Use
  Company Number: None

PATIENT
  Sex: Male
  Weight: 83.9 kg

DRUGS (1)
  1. ERBITUX [Suspect]
     Dosage: 250MG/M2 WKLY IV
     Route: 042
     Dates: end: 20070814

REACTIONS (3)
  - DEPRESSION [None]
  - FATIGUE [None]
  - WEIGHT DECREASED [None]
